FAERS Safety Report 6996201-9 (Version None)
Quarter: 2010Q3

REPORT INFORMATION
  Report Type: 
  Country: None (occurrence: None)
  Receive Date: 20100918
  Receipt Date: 20090209
  Transmission Date: 20110219
  Serious: No
  Sender: FDA-Public Use
  Company Number: US-WYE-H07527009

PATIENT
  Age: 66 Year
  Sex: Female
  Weight: 52.21 kg

DRUGS (3)
  1. ADVIL COLD AND SINUS [Suspect]
     Indication: NASOPHARYNGITIS
     Dosage: 1 LIQUI-GEL AT 8:30 PM
     Route: 048
     Dates: start: 20081220
  2. ADVIL COLD AND SINUS [Suspect]
     Indication: SINUS DISORDER
     Dosage: 2 MORE LIQUI-GELS 11:30 PM
     Route: 048
     Dates: start: 20081220, end: 20081220
  3. AUGMENTIN '125' [Concomitant]

REACTIONS (2)
  - DRUG INEFFECTIVE [None]
  - INCORRECT DOSE ADMINISTERED [None]
